FAERS Safety Report 18305933 (Version 2)
Quarter: 2020Q4

REPORT INFORMATION
  Report Type: Spontaneous
  Country: ES (occurrence: ES)
  Receive Date: 20200924
  Receipt Date: 20201021
  Transmission Date: 20210113
  Serious: Yes (Hospitalization, Other)
  Sender: FDA-Public Use
  Company Number: ES-ACCORD-202452

PATIENT
  Age: 55 Year
  Sex: Male

DRUGS (3)
  1. METHOTREXATE. [Suspect]
     Active Substance: METHOTREXATE
     Indication: NAIL PSORIASIS
  2. INFLIXIMAB [Suspect]
     Active Substance: INFLIXIMAB
     Indication: NAIL PSORIASIS
     Dosage: UNK
     Route: 042
  3. APREMILAST [Suspect]
     Active Substance: APREMILAST
     Indication: PRODUCT USED FOR UNKNOWN INDICATION
     Dosage: UNK

REACTIONS (4)
  - COVID-19 [Unknown]
  - Hairy cell leukaemia [Unknown]
  - Cyclic neutropenia [Unknown]
  - Infection [Unknown]
